FAERS Safety Report 23075996 (Version 1)
Quarter: 2023Q4

REPORT INFORMATION
  Report Type: Spontaneous
  Country: US (occurrence: None)
  Receive Date: 20231017
  Receipt Date: 20231017
  Transmission Date: 20240110
  Serious: Yes (Other)
  Sender: FDA-Public Use
  Company Number: None

PATIENT
  Sex: Female

DRUGS (9)
  1. HUMIRA [Suspect]
     Active Substance: ADALIMUMAB
     Indication: Rheumatoid arthritis
     Dosage: OTHER QUANTITY : 40 MG/0.4ML;?OTHER FREQUENCY : EVERY 14 DAYS;?
     Route: 058
     Dates: start: 20230517
  2. HUMIRA [Suspect]
     Active Substance: ADALIMUMAB
     Dosage: OTHER QUANTITY : 1 PEN (40MG);?OTHER FREQUENCY : EVERY 14 DAYS;?
     Route: 058
  3. HYDROXYZINE PAMOATE [Concomitant]
     Active Substance: HYDROXYZINE PAMOATE
  4. ROSUVASTATIN [Concomitant]
  5. PANTOPRAZOLE [Concomitant]
  6. CITALOPRAM [Concomitant]
  7. MIRTAZAPINE [Concomitant]
  8. ALPRAZOLAM [Concomitant]
  9. ZOLPIDEM [Concomitant]

REACTIONS (9)
  - Eczema [None]
  - Depression [None]
  - Suicidal ideation [None]
  - Haemorrhoidal haemorrhage [None]
  - Rheumatoid arthritis [None]
  - Skin burning sensation [None]
  - Weight decreased [None]
  - Vomiting [None]
  - Pain [None]
